FAERS Safety Report 5383110-4 (Version None)
Quarter: 2007Q3

REPORT INFORMATION
  Report Type: 
  Country: None (occurrence: None)
  Receive Date: 20070710
  Receipt Date: 20070705
  Transmission Date: 20080115
  Serious: Yes (Death)
  Sender: FDA-Public Use
  Company Number: HQWYE915405JUL07

PATIENT
  Sex: Male
  Weight: 83.9 kg

DRUGS (2)
  1. EFFEXOR XR [Suspect]
     Indication: DEPRESSION
     Route: 048
     Dates: start: 20070315
  2. QUININE SULFATE [Concomitant]
     Indication: MUSCLE SPASMS
     Dosage: DOSE AND FREQUENCY UNSPECIFIED
     Dates: start: 19980519

REACTIONS (1)
  - DEATH [None]
